FAERS Safety Report 4761064-9 (Version None)
Quarter: 2005Q3

REPORT INFORMATION
  Report Type: 
  Country: None (occurrence: None)
  Receive Date: 20050901
  Receipt Date: 20050818
  Transmission Date: 20060218
  Serious: Yes (Other)
  Sender: FDA-Public Use
  Company Number: 2005119614

PATIENT
  Sex: Female

DRUGS (1)
  1. MINOXIDIL [Suspect]
     Indication: HYPOTRICHOSIS
     Dosage: TOPICAL
     Route: 061

REACTIONS (2)
  - FACE OEDEMA [None]
  - PRURITUS [None]
